FAERS Safety Report 18884749 (Version 1)
Quarter: 2021Q1

REPORT INFORMATION
  Report Type: Spontaneous
  Country: US (occurrence: US)
  Receive Date: 20210211
  Receipt Date: 20210211
  Transmission Date: 20210420
  Serious: Yes (Death)
  Sender: FDA-Public Use
  Company Number: None

PATIENT
  Age: 46 Year
  Sex: Male

DRUGS (3)
  1. ENVARSUS XR [Suspect]
     Active Substance: TACROLIMUS
     Indication: RENAL TRANSPLANT
     Route: 048
     Dates: start: 20170816, end: 20210208
  2. ENVARSUS XR [Suspect]
     Active Substance: TACROLIMUS
     Indication: RENAL TRANSPLANT
     Route: 048
     Dates: start: 20170816, end: 20210208
  3. MYCOPHENOLIC 360MG [Suspect]
     Active Substance: MYCOPHENOLIC ACID
     Route: 048

REACTIONS (1)
  - COVID-19 [None]

NARRATIVE: CASE EVENT DATE: 20210208
